FAERS Safety Report 6079508-1 (Version None)
Quarter: 2009Q1

REPORT INFORMATION
  Report Type: 
  Country: None (occurrence: None)
  Receive Date: 20090217
  Receipt Date: 20090209
  Transmission Date: 20090719
  Serious: Yes (Hospitalization)
  Sender: FDA-Public Use
  Company Number: GB-RANBAXY-2009RR-21679

PATIENT
  Age: 61 Year
  Sex: Female
  Weight: 75 kg

DRUGS (4)
  1. AMLODIPINE [Suspect]
     Indication: HYPERTENSION
     Dosage: 10 MG, QD
     Route: 048
     Dates: start: 19980101
  2. BENDROFLUMETHIAZIDE [Suspect]
     Indication: HYPERTENSION
     Dosage: 2.5 MG, QD
     Route: 048
     Dates: start: 19980101
  3. TAMOXIFEN CITRATE [Suspect]
     Dosage: 20 MG, QD
     Route: 048
     Dates: start: 20080801
  4. KALMS [Concomitant]

REACTIONS (5)
  - APLASTIC ANAEMIA [None]
  - CONTUSION [None]
  - EPISTAXIS [None]
  - MALAISE [None]
  - PANCYTOPENIA [None]
